FAERS Safety Report 12045623 (Version 3)
Quarter: 2016Q1

REPORT INFORMATION
  Report Type: Spontaneous
  Country: FR (occurrence: FR)
  Receive Date: 20160208
  Receipt Date: 20160210
  Transmission Date: 20160526
  Serious: Yes (Other)
  Sender: FDA-Public Use
  Company Number: FR-JNJFOC-20160122294

PATIENT

DRUGS (3)
  1. USTEKINUMAB [Suspect]
     Active Substance: USTEKINUMAB
     Indication: CROHN^S DISEASE
     Dosage: BOTH 45 MG AND 90 MG USED
     Route: 058
     Dates: start: 201103
  2. USTEKINUMAB [Suspect]
     Active Substance: USTEKINUMAB
     Indication: CROHN^S DISEASE
     Route: 058
     Dates: start: 201412
  3. METHOTREXATE [Concomitant]
     Active Substance: METHOTREXATE
     Indication: IMMUNOSUPPRESSION
     Route: 065

REACTIONS (18)
  - Off label use [Unknown]
  - Otitis externa [Unknown]
  - Pneumonia [Unknown]
  - Folliculitis [Unknown]
  - Product use issue [Unknown]
  - Bronchitis [Unknown]
  - Depression [Unknown]
  - Therapeutic response unexpected [Unknown]
  - Drug ineffective for unapproved indication [Unknown]
  - Urinary tract infection [Unknown]
  - Nasopharyngitis [Unknown]
  - Myalgia [Unknown]
  - Staphylococcal infection [Unknown]
  - Psoriasis [Unknown]
  - Hypersensitivity [Unknown]
  - Sinusitis [Unknown]
  - Eczema [Unknown]
  - Arthralgia [Unknown]
